FAERS Safety Report 10862571 (Version 1)
Quarter: 2015Q1

REPORT INFORMATION
  Report Type: Report from Study
  Country: US (occurrence: None)
  Receive Date: 20150219
  Receipt Date: 20150219
  Transmission Date: 20150721
  Serious: Yes (Other)
  Sender: FDA-Public Use
  Company Number: US2015GSK020085

PATIENT
  Age: 36 Year
  Sex: Female

DRUGS (4)
  1. DOLUTEGRAVIR (DOLUTEGRAVIR) TABLET [Suspect]
     Active Substance: DOLUTEGRAVIR
     Indication: HIV INFECTION
     Dosage: TOTAL DAILY DOSE OF 50 MG, ORAL
     Route: 048
     Dates: end: 20141209
  2. RITONAVIR. [Suspect]
     Active Substance: RITONAVIR
     Indication: HIV INFECTION
     Dosage: TOTAL DAILY DOSE OF 100 MG, ORAL
     Route: 048
     Dates: start: 20141209
  3. REYATAZ [Suspect]
     Active Substance: ATAZANAVIR SULFATE
     Indication: HIV INFECTION
     Dosage: TOTAL DAILY DOSE OF 300 MG, ORAL
     Route: 048
     Dates: start: 20141209
  4. TRUVADA [Suspect]
     Active Substance: EMTRICITABINE\TENOFOVIR DISOPROXIL FUMARATE
     Indication: HIV INFECTION
     Dosage: TOTAL DAILY DOSE OF 1 TAB/CAP, ORAL
     Route: 048

REACTIONS (4)
  - Abortion spontaneous [None]
  - Maternal exposure during pregnancy [None]
  - Thrombosis [None]
  - Pregnancy [None]

NARRATIVE: CASE EVENT DATE: 20141228
